FAERS Safety Report 8874122 (Version 1)
Quarter: 2012Q4

REPORT INFORMATION
  Report Type: 
  Country: CA (occurrence: CA)
  Receive Date: 20121023
  Receipt Date: 20121023
  Transmission Date: 20130627
  Serious: Yes (Other)
  Sender: FDA-Public Use
  Company Number: CA-ROCHE-1131751

PATIENT
  Age: 28 Year
  Sex: Male

DRUGS (13)
  1. SOMATROPIN [Suspect]
     Indication: PRODUCT USED FOR UNKNOWN INDICATION
     Route: 058
  2. DEHYDROEPIANDROSTERONE-3-SULFATE SODIUM [Suspect]
     Indication: PRODUCT USED FOR UNKNOWN INDICATION
     Route: 065
  3. ACETYLCARNITINE [Concomitant]
     Route: 065
  4. BETA-HYDROXY-BETA-METHYLBUTYRATE [Concomitant]
     Route: 065
  5. CALCITRIOL [Concomitant]
     Route: 065
  6. COENZYME Q-10 [Concomitant]
     Route: 065
  7. FLUTICASONE [Concomitant]
     Route: 065
  8. GLUTAMINE [Concomitant]
     Route: 065
  9. MULTIVITAMIN [Concomitant]
     Route: 065
  10. OMEGA-3 [Concomitant]
     Route: 065
  11. SALBUTAMOL [Concomitant]
     Route: 055
  12. SEVELAMER [Concomitant]
     Route: 065
  13. THYROXINE [Concomitant]
     Route: 065

REACTIONS (6)
  - Blood alkaline phosphatase increased [Unknown]
  - Blood parathyroid hormone increased [Unknown]
  - Fall [Unknown]
  - Osteoporosis [Unknown]
  - Tendon calcification [Unknown]
  - Tendon rupture [Unknown]
